FAERS Safety Report 18661701 (Version 3)
Quarter: 2021Q1

REPORT INFORMATION
  Report Type: Spontaneous
  Country: GR (occurrence: GR)
  Receive Date: 20201224
  Receipt Date: 20210202
  Transmission Date: 20210419
  Serious: Yes (Other)
  Sender: FDA-Public Use
  Company Number: GR-GLAXOSMITHKLINE-GR2020250743

PATIENT
  Age: 74 Year
  Sex: Male

DRUGS (2)
  1. FLIXOTIDE [Suspect]
     Active Substance: FLUTICASONE PROPIONATE
     Indication: PRODUCT USED FOR UNKNOWN INDICATION
     Dosage: 2 DF, QD(INHALATION)
     Dates: start: 1997
  2. AEROLIN [Suspect]
     Active Substance: ALBUTEROL
     Indication: PRODUCT USED FOR UNKNOWN INDICATION
     Dosage: 2 DF, QD(INHALATION)
     Dates: start: 1997

REACTIONS (4)
  - Ill-defined disorder [Unknown]
  - Blood glucose increased [Unknown]
  - Cataract [Unknown]
  - Cataract operation [Unknown]

NARRATIVE: CASE EVENT DATE: 2010
